FAERS Safety Report 9254691 (Version 1)
Quarter: 2013Q2

REPORT INFORMATION
  Report Type: Report from Study
  Country: DK (occurrence: DE)
  Receive Date: 20130425
  Receipt Date: 20130425
  Transmission Date: 20140414
  Serious: Yes (Other)
  Sender: FDA-Public Use
  Company Number: DE-FRI-1000044591

PATIENT
  Sex: Female

DRUGS (8)
  1. ESCITALOPRAM [Suspect]
     Dosage: 5 MG
     Route: 048
     Dates: start: 20130111, end: 20130117
  2. QUETIAPIN [Concomitant]
     Dosage: 50 MG
     Route: 048
     Dates: start: 20121004, end: 20121018
  3. QUETIAPIN [Concomitant]
     Dosage: 100 MG
     Route: 048
     Dates: start: 20121019, end: 20121024
  4. QUETIAPIN [Concomitant]
     Dosage: 150 MG
     Route: 048
     Dates: start: 20121025, end: 20121105
  5. QUETIAPIN [Concomitant]
     Dosage: 300 MG
     Route: 048
     Dates: start: 20121106, end: 20130103
  6. QUETIAPIN [Concomitant]
     Dosage: 100 MG
     Route: 048
     Dates: start: 20130104, end: 20130130
  7. XEPLION [Concomitant]
     Dosage: 0.8929 MG
     Route: 030
     Dates: start: 20121126, end: 20121224
  8. XEPLION [Concomitant]
     Dosage: 1.7857 MG
     Route: 030
     Dates: start: 20130121

REACTIONS (1)
  - Drug eruption [Recovered/Resolved]
